FAERS Safety Report 8193604-4 (Version None)
Quarter: 2012Q1

REPORT INFORMATION
  Report Type: 
  Country: None (occurrence: None)
  Receive Date: 20120308
  Receipt Date: 20120228
  Transmission Date: 20120608
  Serious: Yes (Other)
  Sender: FDA-Public Use
  Company Number: PL-ROCHE-1044579

PATIENT

DRUGS (1)
  1. MYCOPHENOLATE MOFETIL (CELLCEPT) [Suspect]
     Indication: PROPHYLAXIS AGAINST TRANSPLANT REJECTION
     Route: 065

REACTIONS (9)
  - HERPES ZOSTER [None]
  - ABDOMINAL PAIN [None]
  - DIARRHOEA [None]
  - CYTOMEGALOVIRUS INFECTION [None]
  - URINARY TRACT INFECTION [None]
  - ARTERITIS INFECTIVE [None]
  - VOMITING [None]
  - RESPIRATORY TRACT INFECTION [None]
  - NAUSEA [None]
